FAERS Safety Report 9135102 (Version 1)
Quarter: 2013Q1

REPORT INFORMATION
  Report Type: Report from Study
  Country: US (occurrence: US)
  Receive Date: 20130304
  Receipt Date: 20130304
  Transmission Date: 20140127
  Serious: No
  Sender: FDA-Public Use
  Company Number: US-VERTEX PHARMACEUTICALS INC.-2013-002903

PATIENT
  Sex: Male
  Weight: 83 kg

DRUGS (5)
  1. VX-950 (TELAPREVIR) [Suspect]
     Indication: HEPATITIS C
     Dosage: 750 MG, TID
     Route: 048
  2. PEGASYS [Suspect]
     Indication: HEPATITIS C
     Dosage: 180 ?G
  3. RIBAPAK [Suspect]
     Indication: HEPATITIS C
     Dosage: 1000, QD
  4. PRILOSEC [Concomitant]
     Dosage: 10 MG
  5. TYLENOL [Concomitant]
     Dosage: 500 MG

REACTIONS (4)
  - Influenza like illness [Unknown]
  - Injection site pain [Unknown]
  - Chills [Unknown]
  - Rash [Recovered/Resolved]
